FAERS Safety Report 24744967 (Version 1)
Quarter: 2024Q4

REPORT INFORMATION
  Report Type: Spontaneous
  Country: US (occurrence: US)
  Receive Date: 20241217
  Receipt Date: 20241217
  Transmission Date: 20250115
  Serious: No
  Sender: ALEXION PHARMACEUTICALS
  Company Number: US-AstraZeneca-CH-00730084AP

PATIENT

DRUGS (4)
  1. BYETTA [Suspect]
     Active Substance: EXENATIDE
  2. BYETTA [Suspect]
     Active Substance: EXENATIDE
     Route: 058
  3. BYETTA [Suspect]
     Active Substance: EXENATIDE
  4. BYETTA [Suspect]
     Active Substance: EXENATIDE
     Route: 058

REACTIONS (11)
  - Brain fog [Unknown]
  - Headache [Unknown]
  - Feeling jittery [Unknown]
  - Dizziness [Unknown]
  - Diarrhoea [Unknown]
  - No adverse event [Unknown]
  - Counterfeit product administered [Unknown]
  - Incorrect dose administered [Unknown]
  - No adverse event [Unknown]
  - Vomiting [Unknown]
  - Visual impairment [Unknown]
